FAERS Safety Report 26115263 (Version 1)
Quarter: 2025Q4

REPORT INFORMATION
  Report Type: Spontaneous
  Country: US (occurrence: US)
  Receive Date: 20251203
  Receipt Date: 20251203
  Transmission Date: 20260118
  Serious: No
  Sender: LUPIN
  Company Number: US-LUPIN PHARMACEUTICALS INC.-2025-10750

PATIENT
  Age: 35 Year
  Weight: 154.2 kg

DRUGS (1)
  1. ALBUTEROL SULFATE [Suspect]
     Active Substance: ALBUTEROL SULFATE
     Indication: Asthma
     Dosage: 2 PUFFS EVERY 4 HOURS, QD, AS NEEDED

REACTIONS (3)
  - Asthma [Unknown]
  - Wrong technique in product usage process [Unknown]
  - Device deposit issue [Unknown]
